FAERS Safety Report 4288937-8 (Version None)
Quarter: 2004Q1

REPORT INFORMATION
  Report Type: 
  Country: None (occurrence: None)
  Receive Date: 20040209
  Receipt Date: 20040130
  Transmission Date: 20041129
  Serious: Yes (Hospitalization, Other)
  Sender: FDA-Public Use
  Company Number: PHRM2004FR00720

PATIENT
  Age: 60 Year
  Sex: Male

DRUGS (1)
  1. VOLTAREN [Suspect]
     Indication: ARTHRALGIA
     Dosage: UNK, UNK
     Route: 048
     Dates: start: 20031006, end: 20031015

REACTIONS (4)
  - BLOOD GASTRIN INCREASED [None]
  - DUODENAL ULCER HAEMORRHAGE [None]
  - GASTRINOMA [None]
  - GASTRITIS [None]
